FAERS Safety Report 13843981 (Version 2)
Quarter: 2017Q3

REPORT INFORMATION
  Report Type: Spontaneous
  Country: CA (occurrence: CA)
  Receive Date: 20170808
  Receipt Date: 20170925
  Transmission Date: 20171127
  Serious: Yes (Hospitalization)
  Sender: FDA-Public Use
  Company Number: CA-LPDUSPRD-20171107

PATIENT
  Age: 70 Year
  Sex: Female
  Weight: 99.79 kg

DRUGS (1)
  1. VENOFER [Suspect]
     Active Substance: IRON SUCROSE
     Dosage: 500 MG/DAY
     Route: 042
     Dates: start: 20170220, end: 20170220

REACTIONS (4)
  - Hypertension [Unknown]
  - Skin discolouration [Unknown]
  - Oedema peripheral [Unknown]
  - Arthralgia [Unknown]

NARRATIVE: CASE EVENT DATE: 20170220
